FAERS Safety Report 23238079 (Version 1)
Quarter: 2023Q4

REPORT INFORMATION
  Report Type: Report from Study
  Country: US (occurrence: US)
  Receive Date: 20231129
  Receipt Date: 20231129
  Transmission Date: 20240110
  Serious: Yes (Hospitalization, Other)
  Sender: FDA-Public Use
  Company Number: US-ABBVIE-5510675

PATIENT
  Sex: Male

DRUGS (1)
  1. SKYRIZI [Suspect]
     Active Substance: RISANKIZUMAB-RZAA
     Indication: Product used for unknown indication
     Route: 058
     Dates: start: 20230815, end: 20230915

REACTIONS (9)
  - Diarrhoea [Recovered/Resolved]
  - Cardiac function test abnormal [Not Recovered/Not Resolved]
  - Dyspnoea [Recovered/Resolved]
  - Ventricular tachycardia [Not Recovered/Not Resolved]
  - Feeling abnormal [Unknown]
  - Presyncope [Unknown]
  - Cardiac dysfunction [Unknown]
  - Loss of consciousness [Unknown]
  - Impaired quality of life [Unknown]

NARRATIVE: CASE EVENT DATE: 20230101
